FAERS Safety Report 21782906 (Version 2)
Quarter: 2023Q1

REPORT INFORMATION
  Report Type: Spontaneous
  Country: US (occurrence: None)
  Receive Date: 20221227
  Receipt Date: 20230207
  Transmission Date: 20230417
  Serious: No
  Sender: FDA-Public Use
  Company Number: 2022A409699

PATIENT
  Age: 25472 Day
  Sex: Female

DRUGS (1)
  1. BYDUREON BCISE [Suspect]
     Active Substance: EXENATIDE
     Dosage: 2.0MG UNKNOWN

REACTIONS (3)
  - Injection site haemorrhage [Unknown]
  - Device use issue [Unknown]
  - Needle issue [Unknown]

NARRATIVE: CASE EVENT DATE: 20221214
